FAERS Safety Report 9461803 (Version 1)
Quarter: 2013Q3

REPORT INFORMATION
  Report Type: Spontaneous
  Country: US (occurrence: US)
  Receive Date: 20130816
  Receipt Date: 20130816
  Transmission Date: 20140515
  Serious: No
  Sender: FDA-Public Use
  Company Number: US-BAYER-2013-098885

PATIENT
  Age: 86 Year
  Sex: Female
  Weight: 57 kg

DRUGS (4)
  1. ALEVE TABLET [Suspect]
     Dosage: 1 DOSE, ONCE
     Route: 048
     Dates: start: 20130812, end: 20130812
  2. BAYER ASPIRIN REGIMEN ADULT LOW STRENGTH [Concomitant]
  3. LOVASTATIN [Concomitant]
  4. HYDROCODONE [Concomitant]

REACTIONS (1)
  - Swollen tongue [Recovered/Resolved]
